FAERS Safety Report 6078659-5 (Version None)
Quarter: 2009Q1

REPORT INFORMATION
  Report Type: 
  Country: None (occurrence: None)
  Receive Date: 20090216
  Receipt Date: 20090209
  Transmission Date: 20090719
  Serious: No
  Sender: FDA-Public Use
  Company Number: PHHY2009AT00461

PATIENT
  Sex: Male

DRUGS (1)
  1. TASIGNA [Suspect]
     Dosage: 100 MG TWICE DAILY

REACTIONS (1)
  - BLOOD CREATINE PHOSPHOKINASE INCREASED [None]
